FAERS Safety Report 9662825 (Version 2)
Quarter: 2013Q4

REPORT INFORMATION
  Report Type: Spontaneous
  Country: JP (occurrence: JP)
  Receive Date: 20131031
  Receipt Date: 20131031
  Transmission Date: 20140711
  Serious: Yes (Hospitalization)
  Sender: FDA-Public Use
  Company Number: JP-TAKEDA-TPA2012A03161

PATIENT
  Age: 63 Year
  Sex: Female
  Weight: 51.2 kg

DRUGS (12)
  1. FEBURIC [Suspect]
     Indication: HYPERURICAEMIA
     Dosage: 10 MG, QD
     Route: 048
     Dates: start: 20111213, end: 20120109
  2. FEBURIC [Suspect]
     Dosage: 10 MG,QD
     Route: 048
     Dates: start: 20120110, end: 20120410
  3. ARTIST [Suspect]
     Indication: HYPERTENSION
     Dosage: 10 MG, QD
     Route: 048
     Dates: end: 20120410
  4. ARTIST [Suspect]
     Dosage: 2.5  MG,QD
     Route: 048
     Dates: end: 20120410
  5. EPADEL [Concomitant]
     Indication: DYSLIPIDAEMIA
     Dosage: 1800 MG, QD
     Route: 048
     Dates: end: 20120410
  6. LIPIDIL [Concomitant]
     Indication: DYSLIPIDAEMIA
     Dosage: 200 MG, QD
     Route: 048
     Dates: end: 20120410
  7. URALYT [Concomitant]
     Indication: HYPERURICAEMIA
     Dosage: 3 DF, QD
     Route: 048
     Dates: end: 20120410
  8. PREDONINE [Concomitant]
     Indication: GOUT
     Dosage: 5 MG, QD
     Route: 048
     Dates: start: 20120117
  9. URSO [Concomitant]
     Indication: HEPATIC FUNCTION ABNORMAL
     Dosage: 300 MG, QD
     Route: 048
     Dates: start: 20120313, end: 20120410
  10. FERROMIA [Concomitant]
     Indication: ANAEMIA
     Dosage: 2 DF,QD
     Route: 048
     Dates: start: 20120326
  11. MAGMITT [Concomitant]
     Indication: CONSTIPATION
     Dosage: 3 DF,QD
     Route: 048
     Dates: end: 20120410
  12. LISPINE [Concomitant]
     Indication: SUPRAVENTRICULAR TACHYCARDIA
     Dosage: 1 DF,QD
     Route: 048
     Dates: end: 20120410

REACTIONS (3)
  - Hepatic function abnormal [Recovered/Resolved]
  - Platelet count decreased [Recovering/Resolving]
  - Lipids abnormal [Recovered/Resolved]
